FAERS Safety Report 18469433 (Version 2)
Quarter: 2020Q4

REPORT INFORMATION
  Report Type: Spontaneous
  Country: RU (occurrence: RU)
  Receive Date: 20201105
  Receipt Date: 20201115
  Transmission Date: 20210114
  Serious: Yes (Other)
  Sender: FDA-Public Use
  Company Number: NVSC2020RU296999

PATIENT
  Age: 7 Year
  Sex: Male

DRUGS (4)
  1. NELARABINE [Suspect]
     Active Substance: NELARABINE
     Indication: PRECURSOR T-LYMPHOBLASTIC LYMPHOMA/LEUKAEMIA STAGE IV
     Dosage: 650 MG/M2
     Route: 042
     Dates: start: 20180910
  2. ONCASPAR [Suspect]
     Active Substance: PEGASPARGASE
     Indication: PRECURSOR T-LYMPHOBLASTIC LYMPHOMA/LEUKAEMIA STAGE IV
     Dosage: 1000 IU/M2
     Route: 042
     Dates: start: 20180910
  3. CYCLOPHOSPHAMIDE. [Suspect]
     Active Substance: CYCLOPHOSPHAMIDE
     Indication: PRECURSOR T-LYMPHOBLASTIC LYMPHOMA/LEUKAEMIA STAGE IV
     Dosage: 300 MG/M2
     Route: 042
     Dates: start: 20180910
  4. DEXAMETHASONE. [Suspect]
     Active Substance: DEXAMETHASONE
     Indication: PRECURSOR T-LYMPHOBLASTIC LYMPHOMA/LEUKAEMIA STAGE IV
     Dosage: 20 MG/M2
     Route: 042
     Dates: start: 20180910

REACTIONS (4)
  - Cyanosis [Unknown]
  - Dyspnoea [Unknown]
  - Respiratory failure [Unknown]
  - Orthopnoea [Unknown]
